FAERS Safety Report 10108993 (Version 1)
Quarter: 2014Q2

REPORT INFORMATION
  Report Type: Spontaneous
  Country: US (occurrence: US)
  Receive Date: 20140425
  Receipt Date: 20140425
  Transmission Date: 20141212
  Serious: Yes (Hospitalization)
  Sender: FDA-Public Use
  Company Number: US-BAYER-2014-059257

PATIENT
  Age: 25 Year
  Sex: Female
  Weight: 63.04 kg

DRUGS (4)
  1. YAZ [Suspect]
  2. OCELLA [Suspect]
  3. ZYRTEC [Concomitant]
     Dosage: 10 MG, DAILY
     Route: 048
  4. PERCOCET [Concomitant]

REACTIONS (2)
  - Pulmonary embolism [Recovered/Resolved]
  - Vena cava thrombosis [None]
